FAERS Safety Report 19932604 (Version 1)
Quarter: 2021Q4

REPORT INFORMATION
  Report Type: Spontaneous
  Country: US (occurrence: US)
  Receive Date: 20211006
  Receipt Date: 20211006
  Transmission Date: 20220303
  Serious: No
  Sender: FDA-Public Use
  Company Number: None

PATIENT
  Age: 65 Year
  Sex: Male
  Weight: 164 kg

DRUGS (3)
  1. AMOXICILLIN [Suspect]
     Active Substance: AMOXICILLIN
     Indication: Hypertension
     Route: 048
     Dates: start: 20210908, end: 20210910
  2. HYDROCHLOROTHIAZIDE\LISINOPRIL [Suspect]
     Active Substance: HYDROCHLOROTHIAZIDE\LISINOPRIL
     Indication: Tonsillitis
     Dosage: ?          OTHER DOSE:25/20 MG;
     Route: 048
     Dates: start: 20100624, end: 20210910
  3. HYDROCHLOROTHIAZIDE\LISINOPRIL [Suspect]
     Active Substance: HYDROCHLOROTHIAZIDE\LISINOPRIL
     Indication: Pharyngitis

REACTIONS (2)
  - Angioedema [None]
  - Mini-tracheostomy [None]

NARRATIVE: CASE EVENT DATE: 20210910
